FAERS Safety Report 9772004 (Version 1)
Quarter: 2013Q4

REPORT INFORMATION
  Report Type: Spontaneous
  Country: US (occurrence: None)
  Receive Date: 20131025
  Receipt Date: 20131025
  Transmission Date: 20140711
  Serious: Yes (Death, Hospitalization)
  Sender: FDA-Public Use
  Company Number: ACO_38282_2013

PATIENT
  Age: 44 Year
  Sex: Male

DRUGS (2)
  1. AMPYRA (DALFAMPRIDINE) TABLET, 10MG [Suspect]
     Indication: PRODUCT USED FOR UNKNOWN INDICATION
     Route: 048
     Dates: start: 20130212, end: 2013
  2. TYSABRI (NATALIZUMAB) [Concomitant]

REACTIONS (1)
  - Cerebrovascular accident [None]
